FAERS Safety Report 4499739-1 (Version None)
Quarter: 2004Q4

REPORT INFORMATION
  Report Type: 
  Country: None (occurrence: None)
  Receive Date: 20041112
  Receipt Date: 20041025
  Transmission Date: 20050328
  Serious: Yes (Other)
  Sender: FDA-Public Use
  Company Number: 200420704GDDC

PATIENT
  Age: 25 Year
  Sex: Female

DRUGS (3)
  1. KETEK [Suspect]
     Indication: PHARYNGOTONSILLITIS
     Route: 048
     Dates: start: 20041007, end: 20041007
  2. NIMESULIDE [Concomitant]
     Route: 048
     Dates: start: 20041007
  3. ACETAMINOPHEN [Concomitant]
     Route: 048
     Dates: start: 20041007

REACTIONS (4)
  - BLINDNESS [None]
  - FATIGUE [None]
  - VISION BLURRED [None]
  - VISUAL BRIGHTNESS [None]
